FAERS Safety Report 4828724-2 (Version None)
Quarter: 2005Q4

REPORT INFORMATION
  Report Type: 
  Country: None (occurrence: None)
  Receive Date: 20051115
  Receipt Date: 20051005
  Transmission Date: 20060501
  Serious: Yes (Other)
  Sender: FDA-Public Use
  Company Number: US-MERCK-0510USA04277

PATIENT
  Age: 41 Year
  Sex: Male
  Weight: 210 kg

DRUGS (1)
  1. VIOXX [Suspect]
     Indication: ARTHRITIS
     Route: 048
     Dates: start: 19990101, end: 20040101

REACTIONS (7)
  - AMNESIA [None]
  - CARDIAC FAILURE [None]
  - CONDITION AGGRAVATED [None]
  - DEPRESSION [None]
  - EMOTIONAL DISORDER [None]
  - HEART RATE IRREGULAR [None]
  - RESPIRATORY DISORDER [None]
